FAERS Safety Report 8571516-1 (Version None)
Quarter: 2012Q3

REPORT INFORMATION
  Report Type: 
  Country: None (occurrence: None)
  Receive Date: 20120806
  Receipt Date: 20120727
  Transmission Date: 20120928
  Serious: Yes (Hospitalization)
  Sender: FDA-Public Use
  Company Number: FR-JNJFOC-20120714065

PATIENT
  Age: 88 Year
  Sex: Female

DRUGS (12)
  1. FERROUS SULFATE TAB [Concomitant]
     Route: 065
  2. DIGOXIN [Concomitant]
     Route: 065
  3. PREVISCAN (FLUINDIONE) [Concomitant]
     Route: 065
  4. DURAGESIC-100 [Suspect]
     Indication: PRODUCT USED FOR UNKNOWN INDICATION
     Route: 062
     Dates: start: 20120622, end: 20120630
  5. LEVOTHYROXINE SODIUM [Concomitant]
     Route: 065
  6. SIMVASTATIN [Concomitant]
     Route: 065
  7. FOLIC ACID [Concomitant]
     Route: 065
  8. REQUIP [Concomitant]
     Route: 065
  9. OMEPRAZOLE [Concomitant]
     Route: 065
  10. ATARAX [Concomitant]
     Route: 065
  11. AMLODIPINE BESYLATE [Concomitant]
     Route: 065
  12. FUROSEMIDE [Concomitant]
     Route: 065

REACTIONS (1)
  - CYTOLYTIC HEPATITIS [None]
